FAERS Safety Report 6911398-4 (Version None)
Quarter: 2010Q3

REPORT INFORMATION
  Report Type: 
  Country: None (occurrence: None)
  Receive Date: 20100806
  Receipt Date: 20100729
  Transmission Date: 20110219
  Serious: Yes (Other)
  Sender: FDA-Public Use
  Company Number: GB-PFIZER INC-2007095663

PATIENT
  Age: 58 Year
  Sex: Female
  Weight: 75 kg

DRUGS (12)
  1. PREGABALIN [Suspect]
     Indication: PROCEDURAL PAIN
     Dosage: 75 MG, 2X/DAY
     Route: 048
     Dates: start: 20071029, end: 20071112
  2. PROPOFOL [Concomitant]
     Route: 042
     Dates: start: 20071030, end: 20071030
  3. ATRACURIUM [Concomitant]
     Route: 042
     Dates: start: 20071030, end: 20071030
  4. MORPHINE [Concomitant]
     Route: 042
     Dates: start: 20071030, end: 20071031
  5. ONDANSETRON [Concomitant]
     Route: 042
     Dates: start: 20071030, end: 20071031
  6. AMPICILLIN SODIUM/SULBACTAM SODIUM [Concomitant]
     Route: 042
     Dates: start: 20071030, end: 20071030
  7. ACETAMINOPHEN [Concomitant]
     Route: 048
     Dates: start: 20071030
  8. LACTULOSE [Concomitant]
     Route: 048
     Dates: start: 20071101
  9. ENOXAPARIN SODIUM [Concomitant]
     Route: 058
     Dates: start: 20071030, end: 20071102
  10. DIHYDROCODEINE BITARTRATE INJ [Concomitant]
     Route: 048
     Dates: start: 20071031, end: 20071103
  11. IBUPROFEN TABLETS [Concomitant]
     Route: 048
     Dates: start: 20071031
  12. CYCLIZINE [Concomitant]
     Route: 048
     Dates: start: 20071030, end: 20071031

REACTIONS (1)
  - LIVER FUNCTION TEST ABNORMAL [None]
